FAERS Safety Report 5527537-6 (Version None)
Quarter: 2007Q4

REPORT INFORMATION
  Report Type: 
  Country: None (occurrence: None)
  Receive Date: 20071123
  Receipt Date: 20071113
  Transmission Date: 20080405
  Serious: Yes (Hospitalization)
  Sender: FDA-Public Use
  Company Number: OMPQ-NO-0711S-1325

PATIENT
  Age: 36 Year
  Sex: Male
  Weight: 80 kg

DRUGS (1)
  1. OMNIPAQUE 140 [Suspect]
     Indication: URINARY TRACT INFECTION
     Dosage: SINGLE DOSE, I.V.
     Route: 042
     Dates: start: 20070101, end: 20070101

REACTIONS (1)
  - ERYTHEMA MULTIFORME [None]
